FAERS Safety Report 6301918-5 (Version None)
Quarter: 2009Q3

REPORT INFORMATION
  Report Type: 
  Country: None (occurrence: None)
  Receive Date: 20090807
  Receipt Date: 20090727
  Transmission Date: 20100115
  Serious: Yes (Other)
  Sender: FDA-Public Use
  Company Number: US-ROCHE-605945

PATIENT
  Sex: Male

DRUGS (2)
  1. PEG-INTERFERON A-2A (RO 25-8310) [Suspect]
     Indication: HEPATITIS C
     Dosage: FORM: PRE-FILLED SYRINGE (PFS)
     Route: 065
     Dates: start: 20080502, end: 20081212
  2. RIBAVIRIN [Suspect]
     Indication: HEPATITIS C
     Route: 065
     Dates: start: 20080502, end: 20081212

REACTIONS (7)
  - CONVULSION [None]
  - DRUG INEFFECTIVE [None]
  - HAEMATOCHEZIA [None]
  - HEPATIC CIRRHOSIS [None]
  - HEPATIC PAIN [None]
  - PAIN [None]
  - RED BLOOD CELL COUNT DECREASED [None]
